FAERS Safety Report 6868536-1 (Version None)
Quarter: 2010Q3

REPORT INFORMATION
  Report Type: 
  Country: None (occurrence: None)
  Receive Date: 20100722
  Receipt Date: 20080530
  Transmission Date: 20110219
  Serious: No
  Sender: FDA-Public Use
  Company Number: US-PFIZER INC-2008046964

PATIENT
  Sex: Female
  Weight: 56.363 kg

DRUGS (4)
  1. CHANTIX [Suspect]
     Indication: SMOKING CESSATION THERAPY
     Dates: start: 20080517
  2. ATENOLOL [Concomitant]
  3. EFFEXOR [Concomitant]
  4. BABYPRIN [Concomitant]

REACTIONS (6)
  - ABNORMAL DREAMS [None]
  - DECREASED APPETITE [None]
  - DEPRESSION [None]
  - FATIGUE [None]
  - MALAISE [None]
  - NAUSEA [None]
